FAERS Safety Report 4832610-1 (Version None)
Quarter: 2005Q4

REPORT INFORMATION
  Report Type: 
  Country: None (occurrence: None)
  Receive Date: 20051121
  Receipt Date: 20051109
  Transmission Date: 20060501
  Serious: Yes (Hospitalization)
  Sender: FDA-Public Use
  Company Number: US-JNJFOC-20051102822

PATIENT
  Sex: Female

DRUGS (21)
  1. INFLIXIMAB [Suspect]
     Indication: RHEUMATOID ARTHRITIS
     Route: 042
  2. HUMIRA [Suspect]
     Indication: DRUG USE FOR UNKNOWN INDICATION
  3. AMITRIPTYLINE HCL [Concomitant]
  4. LASIX [Concomitant]
  5. LASIX [Concomitant]
  6. POTASSIUM [Concomitant]
  7. METHOTREXATE [Concomitant]
  8. NEURONTIN [Concomitant]
  9. OXYCONTIN [Concomitant]
  10. PREVACID [Concomitant]
  11. TYLENOL ARTHRITIS [Concomitant]
  12. OXYGEN THERAPY [Concomitant]
  13. VICODIN [Concomitant]
  14. VICODIN [Concomitant]
     Dosage: 10/650, 6 IN 1 DAY
  15. ZAROXOLYN [Concomitant]
  16. LIPITOR [Concomitant]
  17. TEMAZEPAM [Concomitant]
  18. PREDNISONE [Concomitant]
     Dosage: 8 MG AVERAGE DAILY
  19. ACTONEL [Concomitant]
  20. CALCIUM+D [Concomitant]
  21. CALCIUM+D [Concomitant]

REACTIONS (7)
  - BRONCHOPNEUMONIA [None]
  - BUNDLE BRANCH BLOCK RIGHT [None]
  - DIVERTICULITIS [None]
  - MITRAL VALVE INCOMPETENCE [None]
  - OEDEMA PERIPHERAL [None]
  - PULMONARY HYPERTENSION [None]
  - TRICUSPID VALVE INCOMPETENCE [None]
